FAERS Safety Report 8201343-6 (Version None)
Quarter: 2012Q1

REPORT INFORMATION
  Report Type: 
  Country: None (occurrence: None)
  Receive Date: 20120312
  Receipt Date: 20120307
  Transmission Date: 20120608
  Serious: Yes (Hospitalization)
  Sender: FDA-Public Use
  Company Number: US-VERTEX PHARMACEUTICALS INC.-AE-2012-002040

PATIENT
  Sex: Male

DRUGS (8)
  1. INCIVEK [Suspect]
     Indication: HEPATITIS C
     Route: 048
     Dates: start: 20120110, end: 20120213
  2. CYCLOBENZAPRINE HCL [Concomitant]
  3. PEGASYS [Concomitant]
     Indication: HEPATITIS C
  4. TRAMADOL HCL [Concomitant]
  5. FLOMAX [Concomitant]
     Indication: HEPATITIS C
     Route: 048
     Dates: start: 20120110, end: 20120213
  6. LISINOPRIL [Concomitant]
     Indication: HEPATITIS C
     Route: 058
     Dates: start: 20120110, end: 20120213
  7. RIBAVIRIN [Concomitant]
     Indication: HEPATITIS C
  8. LORAZEPAM [Concomitant]

REACTIONS (4)
  - SWELLING FACE [None]
  - RASH [None]
  - ANXIETY [None]
  - PRURITUS [None]
